FAERS Safety Report 6240191-3 (Version None)
Quarter: 2009Q2

REPORT INFORMATION
  Report Type: 
  Country: None (occurrence: None)
  Receive Date: 20090623
  Receipt Date: 20081023
  Transmission Date: 20091009
  Serious: No
  Sender: FDA-Public Use
  Company Number: US-ASTRAZENECA-2007UW16963

PATIENT
  Age: 946 Month
  Sex: Male
  Weight: 75.3 kg

DRUGS (14)
  1. PULMICORT-100 [Suspect]
     Indication: CHRONIC OBSTRUCTIVE PULMONARY DISEASE
     Route: 055
     Dates: start: 20070701
  2. DUONEB [Concomitant]
  3. LASIX [Concomitant]
  4. MILK OF MAGNESIA TAB [Concomitant]
  5. OMEPRAZOLE [Concomitant]
  6. IRON [Concomitant]
  7. POTASSIUM CHLORIDE [Concomitant]
  8. QUININE [Concomitant]
  9. HYDROXYZINE [Concomitant]
  10. BROVANA [Concomitant]
  11. XANAX [Concomitant]
  12. SPIRIVA [Concomitant]
  13. ADVAIR HFA [Concomitant]
  14. ALBUTEROL [Concomitant]

REACTIONS (8)
  - BLOOD PRESSURE INCREASED [None]
  - FATIGUE [None]
  - FEELING JITTERY [None]
  - HEADACHE [None]
  - MUSCLE SPASMS [None]
  - NECK PAIN [None]
  - NERVOUSNESS [None]
  - OEDEMA PERIPHERAL [None]
